FAERS Safety Report 24927005 (Version 1)
Quarter: 2025Q1

REPORT INFORMATION
  Report Type: Other
  Country: GB (occurrence: GB)
  Receive Date: 20250205
  Receipt Date: 20250205
  Transmission Date: 20250409
  Serious: Yes (Other)
  Sender: GLENMARK
  Company Number: None

PATIENT

DRUGS (1)
  1. RILUZOLE [Suspect]
     Active Substance: RILUZOLE
     Indication: Product used for unknown indication
     Dosage: 50 MILLIGRAM, BID (50MG BD )
     Route: 065
     Dates: end: 202411

REACTIONS (2)
  - Illness [Unknown]
  - Adverse drug reaction [Unknown]
